FAERS Safety Report 9219629 (Version 1)
Quarter: 2013Q2

REPORT INFORMATION
  Report Type: Spontaneous
  Country: US (occurrence: None)
  Receive Date: 20130408
  Receipt Date: 20130408
  Transmission Date: 20140414
  Serious: Yes (Other)
  Sender: FDA-Public Use
  Company Number: None

PATIENT
  Age: 56 Year
  Sex: Female
  Weight: 90.72 kg

DRUGS (7)
  1. NORTRIPTYLINE HCL [Suspect]
     Indication: FIBROMYALGIA
     Route: 048
     Dates: start: 20130310, end: 20130401
  2. NORTRIPTYLINE HCL [Suspect]
     Indication: SLEEP DISORDER
     Route: 048
     Dates: start: 20130310, end: 20130401
  3. LYRICA [Concomitant]
  4. MIRAPEX [Concomitant]
  5. DICLOFENAC [Concomitant]
  6. LISINOPRIL/HCTZ [Concomitant]
  7. CYCLOBENZAPRINE [Concomitant]

REACTIONS (7)
  - Dyspepsia [None]
  - Insomnia [None]
  - Asthenia [None]
  - Impaired work ability [None]
  - Abdominal pain upper [None]
  - Chest pain [None]
  - Stress [None]
